FAERS Safety Report 24601009 (Version 2)
Quarter: 2024Q4

REPORT INFORMATION
  Report Type: Report from Study
  Country: US (occurrence: US)
  Receive Date: 20241110
  Receipt Date: 20241113
  Transmission Date: 20250115
  Serious: Yes (Other)
  Sender: ABBVIE
  Company Number: US-ABBVIE-5995337

PATIENT
  Age: 71 Year
  Sex: Male

DRUGS (1)
  1. CREON [Suspect]
     Active Substance: PANCRELIPASE AMYLASE\PANCRELIPASE LIPASE\PANCRELIPASE PROTEASE
     Indication: Pancreatic failure
     Dosage: DOSAGE TO 36,000 UNITS WITH ONE TABLET PER MEAL
     Route: 048
     Dates: start: 2022

REACTIONS (2)
  - Chemotherapy [Recovered/Resolved]
  - Product dispensing error [Not Recovered/Not Resolved]

NARRATIVE: CASE EVENT DATE: 20220501
